FAERS Safety Report 8329355-2 (Version None)
Quarter: 2012Q2

REPORT INFORMATION
  Report Type: 
  Country: None (occurrence: None)
  Receive Date: 20120430
  Receipt Date: 20120418
  Transmission Date: 20120825
  Serious: Yes (Hospitalization)
  Sender: FDA-Public Use
  Company Number: 1265570

PATIENT
  Age: 55 Year
  Sex: Female

DRUGS (2)
  1. (THERAPEUTIC RADIOPHARMACEUTICALS) [Concomitant]
  2. GEMCITABINE HYDROCHLORIDE [Suspect]
     Indication: ADENOCARCINOMA PANCREAS
     Dosage: 40 MG/M^2 TWICE-WEEKLY

REACTIONS (12)
  - PAIN IN EXTREMITY [None]
  - MYOSITIS [None]
  - MYOPATHY [None]
  - ALDOLASE INCREASED [None]
  - NECROSIS [None]
  - MUSCULAR WEAKNESS [None]
  - GAIT DISTURBANCE [None]
  - C-REACTIVE PROTEIN INCREASED [None]
  - BLOOD LACTATE DEHYDROGENASE INCREASED [None]
  - BLOOD GLUCOSE INCREASED [None]
  - GLYCOSYLATED HAEMOGLOBIN INCREASED [None]
  - MUSCLE ATROPHY [None]
